FAERS Safety Report 23136407 (Version 1)
Quarter: 2023Q4

REPORT INFORMATION
  Report Type: Spontaneous
  Country: GB (occurrence: GB)
  Receive Date: 20231102
  Receipt Date: 20231102
  Transmission Date: 20240110
  Serious: Yes (Other)
  Sender: FDA-Public Use
  Company Number: GB-STRIDES ARCOLAB LIMITED-2023SP016214

PATIENT
  Sex: Male

DRUGS (6)
  1. AMLODIPINE [Suspect]
     Active Substance: AMLODIPINE BESYLATE
     Indication: Product used for unknown indication
     Dosage: UNK (MOTHER^S DOSE 10 MG PER DAY)
     Route: 064
  2. AMLODIPINE [Suspect]
     Active Substance: AMLODIPINE BESYLATE
     Dosage: UNK (MOTHER^S DOSE WAS REDUCED 5 MG PER DAY)
     Route: 064
  3. METHYLDOPA [Suspect]
     Active Substance: METHYLDOPA
     Indication: Product used for unknown indication
     Dosage: UNK, (MOTHER^S DOSE 125 MG, TID)
     Route: 064
  4. METHYLDOPA [Suspect]
     Active Substance: METHYLDOPA
     Dosage: UNK, (MOTHER^S DOSE 500 MG, TID)
     Route: 064
  5. RAMIPRIL [Suspect]
     Active Substance: RAMIPRIL
     Indication: Product used for unknown indication
     Dosage: UNK (MOTHER^S DOSE 10 MILLIGRAM PER DAY)
     Route: 064
  6. ASPIRIN [Suspect]
     Active Substance: ASPIRIN
     Indication: Product used for unknown indication
     Dosage: UNK (MOTHER^S DOSE 150 MG PER DAY)
     Route: 064

REACTIONS (3)
  - Foetal growth restriction [Unknown]
  - Foetal cardiac disorder [Unknown]
  - Foetal exposure during pregnancy [Unknown]
